FAERS Safety Report 9542422 (Version 2)
Quarter: 2013Q3

REPORT INFORMATION
  Report Type: Spontaneous
  Country: CA (occurrence: CA)
  Receive Date: 20130923
  Receipt Date: 20130927
  Transmission Date: 20140515
  Serious: Yes (Other)
  Sender: FDA-Public Use
  Company Number: CA-PFIZER INC-2013271223

PATIENT
  Age: 69 Year
  Sex: Male

DRUGS (11)
  1. GABAPENTIN [Suspect]
     Indication: ESSENTIAL TREMOR
     Dosage: 300 MG, 1X/DAY(AT BEDTIME ON DAY 1)
  2. GABAPENTIN [Suspect]
     Dosage: 300 MG, 2X/DAY(ON DAY 2)
  3. GABAPENTIN [Suspect]
     Dosage: 300 MG, 3X/DAY(ON DAY 3)
  4. GABAPENTIN [Suspect]
     Dosage: 300 MG, WEEKLY
  5. GABAPENTIN [Suspect]
     Dosage: 600 MG, 3X/DAY
  6. GABAPENTIN [Suspect]
     Dosage: 1500 MG, DAILY
  7. PRIMIDONE [Concomitant]
     Indication: ESSENTIAL TREMOR
     Dosage: 25 MG, DAILY
  8. PRIMIDONE [Concomitant]
     Dosage: 250 MG, DAILY
     Dates: start: 200903
  9. PRIMIDONE [Concomitant]
     Dosage: 375 MG, DAILY
  10. PRIMIDONE [Concomitant]
     Dosage: 500 MG, DAILY
  11. PRIMIDONE [Concomitant]
     Dosage: 375 MG, DAILY

REACTIONS (2)
  - Off label use [Unknown]
  - Myasthenia gravis [Recovered/Resolved]
